FAERS Safety Report 7055591-1 (Version None)
Quarter: 2010Q4

REPORT INFORMATION
  Report Type: 
  Country: None (occurrence: None)
  Receive Date: 20101021
  Receipt Date: 20101008
  Transmission Date: 20110411
  Serious: Yes (Hospitalization)
  Sender: FDA-Public Use
  Company Number: PHHY2010JP67883

PATIENT
  Sex: Male

DRUGS (19)
  1. AFINITOR [Suspect]
     Indication: METASTATIC RENAL CELL CARCINOMA
     Dosage: 10 MG DAILY
     Route: 048
     Dates: start: 20100716, end: 20100802
  2. VOLTAREN [Concomitant]
     Indication: METASTATIC RENAL CELL CARCINOMA
     Dosage: UNK
     Route: 051
     Dates: start: 20100804, end: 20100826
  3. ZOMETA [Concomitant]
     Indication: METASTATIC RENAL CELL CARCINOMA
     Dosage: 4 MG
     Route: 042
     Dates: start: 20100805, end: 20100805
  4. SUTENT [Concomitant]
     Indication: METASTATIC RENAL CELL CARCINOMA
     Dosage: 50 MG
     Route: 048
     Dates: start: 20090722, end: 20100617
  5. HYPEN [Concomitant]
     Dosage: 400 MG
     Route: 048
     Dates: start: 20100716, end: 20100810
  6. CYTOTEC [Concomitant]
     Indication: PROPHYLAXIS
     Dosage: 400 UG
     Route: 048
     Dates: start: 20100720, end: 20100826
  7. VOGLIBOSE [Concomitant]
     Dosage: 0.6 MG
     Route: 048
     Dates: start: 20100716, end: 20100826
  8. RENIVACE [Concomitant]
     Dosage: 5 MG
     Route: 048
     Dates: start: 20100716, end: 20100826
  9. ZYLORIC [Concomitant]
     Dosage: 100MG
     Route: 048
     Dates: start: 20100716, end: 20100826
  10. BEZATOL - SLOW RELEASE [Concomitant]
     Dosage: 400MG
     Route: 048
     Dates: start: 20100716, end: 20100826
  11. WARFARIN [Concomitant]
     Indication: PROPHYLAXIS
     Dosage: 2MG
     Route: 048
     Dates: start: 20100716, end: 20100801
  12. LOXONIN [Concomitant]
     Indication: METASTATIC RENAL CELL CARCINOMA
     Dosage: UNK
     Dates: start: 20100811, end: 20100826
  13. OXYCONTIN [Concomitant]
     Indication: METASTATIC RENAL CELL CARCINOMA
     Dosage: 25MG
     Dates: start: 20100818, end: 20100826
  14. NOVAMIN [Concomitant]
     Indication: PROPHYLAXIS
     Dosage: 15MG
     Route: 048
     Dates: start: 20100818, end: 20100820
  15. SENNOSIDE [Concomitant]
     Indication: PROPHYLAXIS
     Dosage: 24MG
     Route: 048
     Dates: start: 20100818, end: 20100820
  16. OXINORM [Concomitant]
     Indication: METASTATIC RENAL CELL CARCINOMA
     Dosage: 2.5G
     Route: 048
     Dates: start: 20100818
  17. PENTAZOCINE LACTATE [Concomitant]
     Indication: METASTATIC RENAL CELL CARCINOMA
     Dosage: 15MG
     Route: 042
     Dates: start: 20100802
  18. ATARAX [Concomitant]
     Indication: METASTATIC RENAL CELL CARCINOMA
     Dosage: 25MG
     Dates: start: 20100802
  19. MORPHINE HYDROCHLORIDE [Concomitant]
     Indication: METASTATIC RENAL CELL CARCINOMA
     Dosage: 5MG
     Route: 042
     Dates: start: 20100813

REACTIONS (2)
  - ANAL ABSCESS [None]
  - HYPERGLYCAEMIA [None]
